FAERS Safety Report 5963933-0 (Version None)
Quarter: 2008Q4

REPORT INFORMATION
  Report Type: 
  Country: None (occurrence: None)
  Receive Date: 20081121
  Receipt Date: 20081121
  Transmission Date: 20090506
  Serious: Yes (Hospitalization, Other)
  Sender: FDA-Public Use
  Company Number: None

PATIENT
  Age: 19 Year
  Sex: Female
  Weight: 62 kg

DRUGS (3)
  1. LAMICTAL [Suspect]
     Indication: EPILEPSY
     Dosage: 1 TAB BID
     Dates: start: 20081001
  2. LAMOTRIGINE [Suspect]
     Dosage: 1 TAB BID
     Dates: start: 20081027
  3. SERTRALINE [Concomitant]

REACTIONS (6)
  - ANTICONVULSANT DRUG LEVEL ABNORMAL [None]
  - DIZZINESS [None]
  - EDUCATIONAL PROBLEM [None]
  - FATIGUE [None]
  - HEADACHE [None]
  - THERAPEUTIC RESPONSE UNEXPECTED WITH DRUG SUBSTITUTION [None]
